FAERS Safety Report 5315490-X (Version None)
Quarter: 2007Q2

REPORT INFORMATION
  Report Type: 
  Country: None (occurrence: None)
  Receive Date: 20070503
  Receipt Date: 20070423
  Transmission Date: 20071010
  Serious: Yes (Hospitalization)
  Sender: FDA-Public Use
  Company Number: US-JNJFOC-20070405043

PATIENT
  Age: 77 Year
  Sex: Female

DRUGS (5)
  1. INFLIXIMAB [Suspect]
     Indication: RHEUMATOID ARTHRITIS
     Dosage: ON INFLIXIMAB FOR 4 MONTHS PRIOR TO THE EVENT OF MYCOBACTERIUM TUBERCULOSIS.
  2. METHOTREXATE [Concomitant]
     Indication: RHEUMATOID ARTHRITIS
  3. PREDNISONE TAB [Concomitant]
     Indication: RHEUMATOID ARTHRITIS
  4. WARFARIN [Concomitant]
  5. OXYCODONE HCL [Concomitant]

REACTIONS (1)
  - TUBERCULOSIS [None]
